FAERS Safety Report 16109677 (Version 1)
Quarter: 2019Q1

REPORT INFORMATION
  Report Type: Spontaneous
  Country: PK (occurrence: PK)
  Receive Date: 20190325
  Receipt Date: 20190325
  Transmission Date: 20190418
  Serious: Yes (Other)
  Sender: FDA-Public Use
  Company Number: PK-SUN PHARMACEUTICAL INDUSTRIES LTD-2019RR-202720

PATIENT
  Age: 36 Year
  Sex: Male

DRUGS (7)
  1. PROPOFOL. [Concomitant]
     Active Substance: PROPOFOL
     Indication: ANAESTHESIA
     Dosage: 2 MILLIGRAM/KILOGRAM
     Route: 065
  2. CLOPIDOGREL [Suspect]
     Active Substance: CLOPIDOGREL BISULFATE
     Indication: ANTIPLATELET THERAPY
     Route: 065
  3. FENTANYL. [Concomitant]
     Active Substance: FENTANYL
     Indication: ANAESTHESIA
     Dosage: 1.8 MICROGRAM/KILOGRAM
     Route: 065
  4. ASPIRIN. [Suspect]
     Active Substance: ASPIRIN
     Indication: ANTIPLATELET THERAPY
     Route: 065
  5. ATRACURIUM [Concomitant]
     Active Substance: ATRACURIUM
     Indication: ENDOTRACHEAL INTUBATION
     Dosage: 0.5 MILLIGRAM/KILOGRAM
     Route: 065
  6. SEVOFLURANE. [Concomitant]
     Active Substance: SEVOFLURANE
     Indication: ANAESTHESIA
     Dosage: 3.5 PERCENT
     Route: 065
  7. MORPHINE [Concomitant]
     Active Substance: MORPHINE
     Indication: PERIOPERATIVE ANALGESIA
     Dosage: UNK
     Route: 065

REACTIONS (1)
  - Post procedural haemorrhage [Recovering/Resolving]
